FAERS Safety Report 9283047 (Version 1)
Quarter: 2013Q2

REPORT INFORMATION
  Report Type: Report from Study
  Country: CA (occurrence: CA)
  Receive Date: 20130510
  Receipt Date: 20130510
  Transmission Date: 20140414
  Serious: Yes (Other)
  Sender: FDA-Public Use
  Company Number: CA-JNJFOC-20130502789

PATIENT
  Age: 48 Year
  Sex: Female
  Weight: 85.2 kg

DRUGS (3)
  1. REMICADE [Suspect]
     Indication: ANKYLOSING SPONDYLITIS
     Route: 042
     Dates: start: 20111208
  2. REMICADE [Suspect]
     Indication: RHEUMATOID ARTHRITIS
     Route: 042
     Dates: start: 20111208
  3. EFFEXOR [Concomitant]
     Route: 065

REACTIONS (2)
  - Road traffic accident [Unknown]
  - Post-traumatic neck syndrome [Recovering/Resolving]
